FAERS Safety Report 4760891-1 (Version None)
Quarter: 2005Q3

REPORT INFORMATION
  Report Type: 
  Country: None (occurrence: None)
  Receive Date: 20050901
  Receipt Date: 20050819
  Transmission Date: 20060218
  Serious: Yes (Other)
  Sender: FDA-Public Use
  Company Number: 2005088523

PATIENT
  Age: 30 Year
  Sex: Female

DRUGS (2)
  1. NEURONTIN [Suspect]
     Indication: HEADACHE
     Dosage: 9000 MG (600 MG, DAILY), ORAL
     Route: 048
     Dates: start: 20040101, end: 20050101
  2. NEURONTIN [Suspect]
     Indication: PAIN
     Dosage: 9000 MG (600 MG, DAILY), ORAL
     Route: 048
     Dates: start: 20040101, end: 20050101

REACTIONS (3)
  - DEPENDENCE [None]
  - DRUG ABUSER [None]
  - INCORRECT DOSE ADMINISTERED [None]
